FAERS Safety Report 9222485 (Version 1)
Quarter: 2013Q2

REPORT INFORMATION
  Report Type: Spontaneous
  Country: US (occurrence: US)
  Receive Date: 20130410
  Receipt Date: 20130410
  Transmission Date: 20140414
  Serious: No
  Sender: FDA-Public Use
  Company Number: US-BAYER-2013-037375

PATIENT
  Age: 35 Year
  Sex: Female

DRUGS (2)
  1. SKYLA [Suspect]
     Dosage: UNK UNK, CONT
     Route: 015
     Dates: start: 20130321, end: 20130321
  2. SKYLA [Suspect]
     Dosage: UNK, CONT
     Route: 015
     Dates: start: 2013

REACTIONS (1)
  - Device expulsion [None]
